FAERS Safety Report 5508243-0 (Version None)
Quarter: 2007Q4

REPORT INFORMATION
  Report Type: 
  Country: None (occurrence: None)
  Receive Date: 20071106
  Receipt Date: 20070810
  Transmission Date: 20080405
  Serious: No
  Sender: FDA-Public Use
  Company Number: A0669495A

PATIENT
  Age: 3 Year
  Sex: Male

DRUGS (4)
  1. AMOXIL [Suspect]
  2. ADVAIR DISKUS 100/50 [Concomitant]
  3. ZYRTEC [Concomitant]
  4. VITAMIN [Concomitant]

REACTIONS (3)
  - HYPERSENSITIVITY [None]
  - SKIN REACTION [None]
  - URTICARIA [None]
